FAERS Safety Report 10091815 (Version 1)
Quarter: 2014Q2

REPORT INFORMATION
  Report Type: Spontaneous
  Country: US (occurrence: US)
  Receive Date: 20140421
  Receipt Date: 20140421
  Transmission Date: 20141212
  Serious: No
  Sender: FDA-Public Use
  Company Number: US-TEVA-476236USA

PATIENT
  Age: 85 Year
  Sex: Female
  Weight: 55.39 kg

DRUGS (4)
  1. PROAIR HFA [Suspect]
     Indication: COUGH
  2. BENZONATATE [Concomitant]
  3. FLUTICASONE [Concomitant]
  4. ALLEGRA [Concomitant]

REACTIONS (2)
  - Cough [Recovered/Resolved]
  - Wrong technique in drug usage process [Unknown]
